FAERS Safety Report 4439483-X (Version None)
Quarter: 2004Q3

REPORT INFORMATION
  Report Type: 
  Country: None (occurrence: None)
  Receive Date: 20040901
  Receipt Date: 20040901
  Transmission Date: 20050211
  Serious: Yes (Hospitalization)
  Sender: FDA-Public Use
  Company Number: None

PATIENT
  Sex: Male
  Weight: 102.0593 kg

DRUGS (11)
  1. COUMADIN [Suspect]
     Indication: ATRIAL FIBRILLATION
     Dosage: PO [PRIOR TO ADMISSION]
     Route: 048
  2. LASIX [Concomitant]
  3. CARDIZEM CD [Concomitant]
  4. ZITHROMAX [Concomitant]
  5. NEBULIZERS [Concomitant]
  6. SINGULAIR [Concomitant]
  7. VOLMAX [Concomitant]
  8. FOLIC ACID [Concomitant]
  9. GLIPIZIDE [Concomitant]
  10. COMBIVENT [Concomitant]
  11. ALBUTEROL [Concomitant]

REACTIONS (6)
  - ECCHYMOSIS [None]
  - FAECES DISCOLOURED [None]
  - HAEMATEMESIS [None]
  - INTERNATIONAL NORMALISED RATIO INCREASED [None]
  - MELAENA [None]
  - PROTHROMBIN TIME PROLONGED [None]
